FAERS Safety Report 16688890 (Version 1)
Quarter: 2019Q4

REPORT INFORMATION
  Report Type: Spontaneous
  Country: US (occurrence: US)
  Receive Date: 20190809
  Receipt Date: 20190809
  Transmission Date: 20200122
  Serious: No
  Sender: FDA-Public Use
  Company Number: None

PATIENT
  Age: 72 Year
  Sex: Male
  Weight: 72 kg

DRUGS (1)
  1. LAMICTAL XR [Suspect]
     Active Substance: LAMOTRIGINE
     Indication: SEIZURE
     Dosage: ?          QUANTITY:1 TABLET(S);?
     Route: 048

REACTIONS (13)
  - Irritability [None]
  - Sleep deficit [None]
  - Constipation [None]
  - Visual impairment [None]
  - Apraxia [None]
  - Symptom recurrence [None]
  - Confusional state [None]
  - Tremor [None]
  - Aphasia [None]
  - Micturition urgency [None]
  - Photosensitivity reaction [None]
  - Eye irritation [None]
  - Nocturia [None]

NARRATIVE: CASE EVENT DATE: 20170217
